FAERS Safety Report 9115365 (Version 1)
Quarter: 2013Q1

REPORT INFORMATION
  Report Type: Spontaneous
  Country: US (occurrence: None)
  Receive Date: 20130129
  Receipt Date: 20130129
  Transmission Date: 20140127
  Serious: Yes (Death)
  Sender: FDA-Public Use
  Company Number: ADR-2013-00123

PATIENT
  Age: 55 Year
  Sex: Male

DRUGS (3)
  1. BACLOFEN INTRATHECAL [Suspect]
     Indication: SPINAL CORD INJURY
  2. BACLOFEN INTRATHECAL [Suspect]
     Indication: SPINAL CORD DISORDER
  3. BACLOFEN (ORAL) [Concomitant]

REACTIONS (1)
  - Death [None]
